FAERS Safety Report 11197775 (Version 1)
Quarter: 2015Q2

REPORT INFORMATION
  Report Type: Spontaneous
  Country: US (occurrence: US)
  Receive Date: 20150617
  Receipt Date: 20150617
  Transmission Date: 20150821
  Serious: No
  Sender: FDA-Public Use
  Company Number: US-TAKEDA-2014TUS007497

PATIENT
  Age: 70 Year
  Sex: Male

DRUGS (1)
  1. ULORIC [Suspect]
     Active Substance: FEBUXOSTAT
     Indication: HYPERURICAEMIA
     Dosage: 80 MG, QD
     Route: 048

REACTIONS (2)
  - Nausea [Recovered/Resolved]
  - Vomiting [Recovered/Resolved]
